FAERS Safety Report 12802460 (Version 1)
Quarter: 2016Q4

REPORT INFORMATION
  Report Type: Report from Study
  Country: US (occurrence: US)
  Receive Date: 20161003
  Receipt Date: 20161003
  Transmission Date: 20170207
  Serious: Yes (Life-Threatening, Hospitalization, Other)
  Sender: FDA-Public Use
  Company Number: US-ROCHE-1007920

PATIENT
  Age: 67 Year
  Sex: Female
  Weight: 77.8 kg

DRUGS (4)
  1. PACLITAXEL. [Suspect]
     Active Substance: PACLITAXEL
     Indication: ENDOMETRIAL ADENOCARCINOMA
     Dosage: FOR 6 CYCLES
     Route: 042
     Dates: start: 20100615
  2. BEVACIZUMAB [Suspect]
     Active Substance: BEVACIZUMAB
     Indication: ENDOMETRIAL ADENOCARCINOMA
     Dosage: LAST DOSE PRIOR TO SAE: 09 JULY 2011. OVER 30-90 MIN, DAY 1 X 6 CYCLES?1215 MG
     Route: 042
     Dates: start: 20100615
  3. BEVACIZUMAB [Suspect]
     Active Substance: BEVACIZUMAB
     Dosage: LAST DOSE PRIOR TO SAE: 09 JULY 2011. OVER 30-90 MIN, DAY 1 X 6 CYCLES?1078 MG
     Route: 042
     Dates: start: 20100615
  4. CARBOPLATIN. [Suspect]
     Active Substance: CARBOPLATIN
     Indication: ENDOMETRIAL ADENOCARCINOMA
     Dosage: DOSE: 6 AUC. LAST DOSE PRIOR TO SAE: 09 JULY 2011. OVER 30 MIN ON DAY 1 X 6 CYCLES?TO REACH AUC OF 6
     Route: 042
     Dates: start: 20100615

REACTIONS (8)
  - Neutrophil count decreased [Unknown]
  - Large intestinal obstruction [Recovered/Resolved]
  - Hyperuricaemia [Recovered/Resolved]
  - White blood cell count decreased [Unknown]
  - Proteinuria [Unknown]
  - Platelet count decreased [Unknown]
  - Hypertension [Unknown]
  - Embolism [Unknown]

NARRATIVE: CASE EVENT DATE: 20100723
